FAERS Safety Report 6858866-1 (Version None)
Quarter: 2010Q3

REPORT INFORMATION
  Report Type: 
  Country: None (occurrence: None)
  Receive Date: 20100719
  Receipt Date: 20080325
  Transmission Date: 20110219
  Serious: Yes (Other)
  Sender: FDA-Public Use
  Company Number: US-PFIZER INC-2008014329

PATIENT
  Age: 35 Year
  Sex: Female

DRUGS (4)
  1. CHANTIX [Suspect]
     Indication: SMOKING CESSATION THERAPY
     Route: 048
     Dates: start: 20080103, end: 20080101
  2. KLONOPIN [Concomitant]
  3. LEXAPRO [Concomitant]
  4. DEPO-PROVERA [Concomitant]

REACTIONS (3)
  - ANXIETY [None]
  - DRUG WITHDRAWAL SYNDROME [None]
  - SUICIDAL IDEATION [None]
